FAERS Safety Report 9215666 (Version 2)
Quarter: 2013Q2

REPORT INFORMATION
  Report Type: Report from Study
  Country: CZ (occurrence: CZ)
  Receive Date: 20130408
  Receipt Date: 20130527
  Transmission Date: 20140414
  Serious: Yes (Hospitalization)
  Sender: FDA-Public Use
  Company Number: CZ-BIOGENIDEC-2013BI016624

PATIENT
  Age: 48 Year
  Sex: Female
  Weight: 57 kg

DRUGS (3)
  1. BG00012 [Suspect]
     Indication: MULTIPLE SCLEROSIS
     Route: 048
     Dates: start: 20090615
  2. STILNOX [Concomitant]
     Indication: INSOMNIA
     Route: 048
     Dates: start: 20090615
  3. TORVACARD [Concomitant]
     Indication: HYPOCHOLESTEROLAEMIA
     Route: 048
     Dates: start: 20110315

REACTIONS (1)
  - Endometriosis [Recovered/Resolved]
